FAERS Safety Report 5094406-8 (Version None)
Quarter: 2006Q3

REPORT INFORMATION
  Report Type: 
  Country: None (occurrence: None)
  Receive Date: 20060831
  Receipt Date: 20060829
  Transmission Date: 20061208
  Serious: Yes (Other)
  Sender: FDA-Public Use
  Company Number: 2006UW17104

PATIENT
  Age: 20 Year
  Sex: Male
  Weight: 71.7 kg

DRUGS (4)
  1. NEXIUM [Suspect]
     Indication: DYSPEPSIA
     Route: 048
     Dates: start: 20060817
  2. NEXIUM [Suspect]
     Indication: NAUSEA
     Route: 048
     Dates: start: 20060817
  3. NEXIUM [Suspect]
     Route: 048
     Dates: start: 20060828, end: 20060828
  4. NEXIUM [Suspect]
     Route: 048
     Dates: start: 20060828, end: 20060828

REACTIONS (1)
  - VASCULITIS [None]
